FAERS Safety Report 8326179-7 (Version None)
Quarter: 2012Q2

REPORT INFORMATION
  Report Type: 
  Country: None (occurrence: None)
  Receive Date: 20120427
  Receipt Date: 20120412
  Transmission Date: 20120825
  Serious: Yes (Hospitalization, Disabling, Other)
  Sender: FDA-Public Use
  Company Number: 2012MA005019

PATIENT
  Age: 59 Year
  Sex: Male

DRUGS (2)
  1. CARBOPLATIN/PACLITAXEL [Concomitant]
  2. GEMCITABINE HYDROCHLORIDE [Suspect]
     Indication: NON-SMALL CELL LUNG CANCER STAGE IV
     Dosage: 1000 MG;QOW;IV
     Route: 042

REACTIONS (3)
  - OPTIC NEURITIS [None]
  - RECALL PHENOMENON [None]
  - BLINDNESS [None]
